FAERS Safety Report 4297391-1 (Version None)
Quarter: 2004Q1

REPORT INFORMATION
  Report Type: 
  Country: None (occurrence: None)
  Receive Date: 20040213
  Receipt Date: 20040205
  Transmission Date: 20041129
  Serious: Yes (Hospitalization)
  Sender: FDA-Public Use
  Company Number: 2004UW02120

PATIENT
  Age: 90 Year
  Sex: Male

DRUGS (2)
  1. SEROQUEL [Suspect]
  2. TYLENOL (CAPLET) [Suspect]

REACTIONS (2)
  - HEPATOTOXICITY [None]
  - JAUNDICE [None]
